FAERS Safety Report 14507690 (Version 1)
Quarter: 2018Q1

REPORT INFORMATION
  Report Type: Spontaneous
  Country: US (occurrence: US)
  Receive Date: 20180208
  Receipt Date: 20180208
  Transmission Date: 20180509
  Serious: Yes (Other)
  Sender: FDA-Public Use
  Company Number: US-BIOMARINAP-US-2018-116987

PATIENT
  Age: 24 Year
  Sex: Female
  Weight: 40 kg

DRUGS (1)
  1. NAGLAZYME [Suspect]
     Active Substance: GALSULFASE
     Indication: PRODUCT USED FOR UNKNOWN INDICATION
     Dosage: UNK, QW
     Route: 042

REACTIONS (5)
  - Headache [Unknown]
  - Intraocular pressure increased [Unknown]
  - Corneal opacity [Unknown]
  - Vision blurred [Unknown]
  - Visual acuity tests abnormal [Unknown]

NARRATIVE: CASE EVENT DATE: 20180202
